FAERS Safety Report 7013054-3 (Version None)
Quarter: 2010Q3

REPORT INFORMATION
  Report Type: 
  Country: None (occurrence: None)
  Receive Date: 20100924
  Receipt Date: 20100914
  Transmission Date: 20110219
  Serious: Yes (Hospitalization, Other)
  Sender: FDA-Public Use
  Company Number: US-PFIZER INC-2010088736

PATIENT
  Age: 80 Year
  Sex: Female

DRUGS (17)
  1. LYRICA [Suspect]
     Indication: DIABETIC NEUROPATHY
     Dosage: UNK MG, UNK
     Dates: start: 20070101
  2. LYRICA [Suspect]
     Dosage: 150 MG, 2X/DAY
     Route: 048
     Dates: end: 20100601
  3. LASIX [Concomitant]
     Dosage: 40 MG, 1X/DAY
     Route: 048
  4. GLYBURIDE [Concomitant]
     Dosage: 10 MG, 2X/DAY
     Route: 048
  5. POTASSIUM CHLORIDE [Concomitant]
     Dosage: 10 MEQ, 1X/DAY
     Route: 048
  6. REGLAN [Concomitant]
     Indication: IMPAIRED GASTRIC EMPTYING
     Dosage: 5 MG, 3X/DAY
     Route: 048
  7. PROTONIX [Concomitant]
     Indication: GASTROOESOPHAGEAL REFLUX DISEASE
     Dosage: 40 MG, 1X/DAY
     Route: 048
  8. ACETYLSALICYLIC ACID [Concomitant]
     Dosage: 162 MG, 1X/DAY
     Route: 048
  9. LOPID [Concomitant]
     Dosage: 600 MG, 2X/DAY
     Route: 048
  10. FOSAMAX [Concomitant]
     Dosage: 70 MG, WEEKLY
  11. ZOCOR [Concomitant]
     Dosage: 20 MG, AT BEDTIME
     Route: 048
  12. IMDUR [Concomitant]
     Dosage: 30 MG, 1X/DAY
     Route: 048
  13. TRAMADOL [Concomitant]
     Dosage: 25 MG, 3X/DAY, AS NEEDED
     Route: 048
  14. TYLENOL [Concomitant]
     Dosage: 650 MG, EVERY 6 HOURS, AS NEEDED
  15. TOPROL-XL [Concomitant]
     Dosage: 100 MG, 1X/DAY
     Route: 048
  16. VALSARTAN [Concomitant]
     Dosage: 40 MG, 1X/DAY
     Route: 048
  17. OS-CAL D [Concomitant]
     Dosage: 1 TABLET, 2X/DAY
     Route: 048

REACTIONS (7)
  - ATRIAL FIBRILLATION [None]
  - BACK PAIN [None]
  - CARDIAC FAILURE CONGESTIVE [None]
  - HYPOTENSION [None]
  - OSTEOARTHRITIS [None]
  - PAIN IN EXTREMITY [None]
  - RENAL FAILURE [None]
